FAERS Safety Report 4276101-8 (Version None)
Quarter: 2004Q1

REPORT INFORMATION
  Report Type: 
  Country: None (occurrence: None)
  Receive Date: 20040121
  Receipt Date: 20030904
  Transmission Date: 20041129
  Serious: No
  Sender: FDA-Public Use
  Company Number: US-GLAXOSMITHKLINE-A0424743A

PATIENT
  Age: 28 Year
  Sex: Male

DRUGS (3)
  1. VALTREX [Suspect]
     Dosage: 1G TWICE PER DAY
     Route: 048
  2. AMOXICILLIN [Concomitant]
  3. BACTROBAN [Concomitant]

REACTIONS (2)
  - HAEMORRHOIDS [None]
  - STAPHYLOCOCCAL INFECTION [None]
